FAERS Safety Report 5398408-3 (Version None)
Quarter: 2007Q3

REPORT INFORMATION
  Report Type: 
  Country: None (occurrence: None)
  Receive Date: 20070726
  Receipt Date: 20070321
  Transmission Date: 20080115
  Serious: No
  Sender: FDA-Public Use
  Company Number: US-AMGEN-KDL216217

PATIENT
  Sex: Female
  Weight: 84 kg

DRUGS (2)
  1. PROCRIT [Suspect]
     Indication: ANAEMIA
     Route: 058
     Dates: start: 20070309
  2. INSULIN [Concomitant]
     Dates: start: 20000101

REACTIONS (2)
  - BLOOD GLUCOSE INCREASED [None]
  - INSOMNIA [None]
